FAERS Safety Report 7088865-9 (Version None)
Quarter: 2010Q4

REPORT INFORMATION
  Report Type: 
  Country: None (occurrence: None)
  Receive Date: 20101108
  Receipt Date: 20101103
  Transmission Date: 20110411
  Serious: Yes (Hospitalization, Other)
  Sender: FDA-Public Use
  Company Number: US-PFIZER INC-2010107150

PATIENT
  Sex: Female

DRUGS (4)
  1. CHANTIX [Suspect]
     Indication: SMOKING CESSATION THERAPY
     Dosage: STARTER PACK, 1 MG, UNK
     Dates: start: 20081017, end: 20090112
  2. CARDIZEM CD [Concomitant]
     Dosage: UNK
     Dates: start: 20040101
  3. LORTAB [Concomitant]
     Dosage: UNK
     Dates: start: 20040101
  4. ULTRASE MT20 [Concomitant]
     Dosage: UNK
     Dates: start: 20070101

REACTIONS (20)
  - AGGRESSION [None]
  - AMNESIA [None]
  - ANXIETY [None]
  - ASTHENIA [None]
  - COGNITIVE DISORDER [None]
  - CONFUSIONAL STATE [None]
  - DEPRESSION [None]
  - DISTURBANCE IN ATTENTION [None]
  - DYSPHEMIA [None]
  - HALLUCINATION, AUDITORY [None]
  - HALLUCINATION, VISUAL [None]
  - HOMICIDAL IDEATION [None]
  - HYPOAESTHESIA [None]
  - HYPOAESTHESIA FACIAL [None]
  - LOSS OF CONSCIOUSNESS [None]
  - MULTIPLE INJURIES [None]
  - NIGHTMARE [None]
  - PAIN IN EXTREMITY [None]
  - SUICIDAL IDEATION [None]
  - VISION BLURRED [None]
